FAERS Safety Report 19899824 (Version 1)
Quarter: 2021Q3

REPORT INFORMATION
  Report Type: Report from Study
  Country: US (occurrence: US)
  Receive Date: 20210929
  Receipt Date: 20210929
  Transmission Date: 20211014
  Serious: Yes (Hospitalization)
  Sender: FDA-Public Use
  Company Number: US-GILEAD-2021-0550231

PATIENT
  Age: 73 Year
  Sex: Female
  Weight: 52.6 kg

DRUGS (1)
  1. AXICABTAGENE CILOLEUCEL [Suspect]
     Active Substance: AXICABTAGENE CILOLEUCEL
     Indication: NON-HODGKIN^S LYMPHOMA UNSPECIFIED HISTOLOGY AGGRESSIVE REFRACTORY
     Dosage: 68 ML
     Route: 042
     Dates: start: 20190824, end: 20190826

REACTIONS (1)
  - White matter lesion [Not Recovered/Not Resolved]

NARRATIVE: CASE EVENT DATE: 20210922
